FAERS Safety Report 9237207 (Version 2)
Quarter: 2013Q2

REPORT INFORMATION
  Report Type: Spontaneous
  Country: US (occurrence: US)
  Receive Date: 20130417
  Receipt Date: 20130523
  Transmission Date: 20140414
  Serious: Yes (Other)
  Sender: FDA-Public Use
  Company Number: US-PFIZER INC-2013119097

PATIENT
  Age: 20 Year
  Sex: Female

DRUGS (4)
  1. LYRICA [Suspect]
     Indication: PAIN IN EXTREMITY
     Dosage: 100 MG, 3X/DAY
     Route: 048
     Dates: start: 20130305, end: 20130315
  2. LYRICA [Suspect]
     Indication: PAIN IN EXTREMITY
  3. CLONIDINE [Suspect]
     Indication: PAIN
     Dosage: 0.1 MG, 2X/DAY
     Dates: start: 20130311, end: 20130330
  4. XYREM [Suspect]
     Indication: NARCOLEPSY
     Dosage: 4.5 G, 2X/DAY (AT NIGHT)
     Dates: start: 201211

REACTIONS (1)
  - Somnolence [Recovered/Resolved]
